FAERS Safety Report 7584216-1 (Version None)
Quarter: 2011Q2

REPORT INFORMATION
  Report Type: 
  Country: None (occurrence: None)
  Receive Date: 20110628
  Receipt Date: 20110628
  Transmission Date: 20111010
  Serious: Yes (Hospitalization)
  Sender: FDA-Public Use
  Company Number: None

PATIENT
  Sex: Male
  Weight: 63.5036 kg

DRUGS (2)
  1. METOPROLOL TARTRATE [Suspect]
     Indication: HYPERTENSION
     Dosage: 1 DAILY ORAL
     Route: 048
     Dates: start: 20110524, end: 20110527
  2. CLONIDINE [Suspect]
     Indication: HYPERTENSION
     Dosage: 1 DAILY ORAL
     Route: 048
     Dates: start: 20110525, end: 20110527

REACTIONS (1)
  - OVERDOSE [None]
